FAERS Safety Report 9512118 (Version 2)
Quarter: 2013Q3

REPORT INFORMATION
  Report Type: Spontaneous
  Country: AU (occurrence: US)
  Receive Date: 20130910
  Receipt Date: 20130923
  Transmission Date: 20140515
  Serious: Yes (Death, Hospitalization)
  Sender: FDA-Public Use
  Company Number: US-TAKEDA-2013TUS000194

PATIENT
  Sex: 0

DRUGS (2)
  1. COLCHICINE [Suspect]
     Dosage: 0.5 MG, UNK
  2. METHAMPHETAMINE [Suspect]

REACTIONS (11)
  - Intestinal ischaemia [Fatal]
  - Gastrointestinal necrosis [Fatal]
  - Acute abdomen [Unknown]
  - Shock [Unknown]
  - Portal venous gas [Fatal]
  - Multi-organ failure [Fatal]
  - Overdose [Unknown]
  - Nausea [Unknown]
  - Vomiting [Unknown]
  - Diarrhoea [Unknown]
  - Abdominal pain [Unknown]
